FAERS Safety Report 5195835-4 (Version None)
Quarter: 2006Q4

REPORT INFORMATION
  Report Type: 
  Country: None (occurrence: None)
  Receive Date: 20061227
  Receipt Date: 20061227
  Transmission Date: 20070319
  Serious: No
  Sender: FDA-Public Use
  Company Number: None

PATIENT
  Age: 27 Year
  Sex: Female
  Weight: 72.5755 kg

DRUGS (1)
  1. PAROXETINE [Suspect]
     Indication: PANIC ATTACK
     Dosage: 20 MG ONCE DAILY PO
     Route: 048
     Dates: start: 20000101, end: 20061226

REACTIONS (23)
  - ABDOMINAL PAIN [None]
  - ABORTION SPONTANEOUS [None]
  - APATHY [None]
  - CHILLS [None]
  - CRYING [None]
  - DEPRESSION [None]
  - DRUG DEPENDENCE [None]
  - DRUG EXPOSURE DURING PREGNANCY [None]
  - DRUG WITHDRAWAL SYNDROME [None]
  - DYSSTASIA [None]
  - EMOTIONAL DISORDER [None]
  - FALL [None]
  - FEAR [None]
  - FEELING ABNORMAL [None]
  - HEART RATE INCREASED [None]
  - IMPAIRED WORK ABILITY [None]
  - MENTAL DISORDER [None]
  - PAIN [None]
  - PARAESTHESIA [None]
  - PREGNANCY [None]
  - SYNCOPE [None]
  - THINKING ABNORMAL [None]
  - WEIGHT INCREASED [None]
